FAERS Safety Report 8982891 (Version 3)
Quarter: 2013Q1

REPORT INFORMATION
  Report Type: Report from Study
  Country: JP (occurrence: JP)
  Receive Date: 20121221
  Receipt Date: 20130226
  Transmission Date: 20140127
  Serious: Yes (Death)
  Sender: FDA-Public Use
  Company Number: JP-GILEAD-2012-0066791

PATIENT
  Age: 71 Year
  Sex: Male

DRUGS (22)
  1. AMBRISENTAN [Suspect]
     Indication: PULMONARY ARTERIAL HYPERTENSION
     Dosage: 2.5MG PER DAY
     Route: 048
     Dates: start: 20120107, end: 20120206
  2. AMBRISENTAN [Suspect]
     Dosage: 5MG PER DAY
     Route: 048
     Dates: start: 20120207, end: 20120228
  3. AMBRISENTAN [Suspect]
     Dosage: 7.5MG PER DAY
     Route: 048
     Dates: start: 20120229, end: 20120306
  4. AMBRISENTAN [Suspect]
     Dosage: 10MG PER DAY
     Route: 048
     Dates: start: 20120307, end: 20120327
  5. AMBRISENTAN [Suspect]
     Dosage: 5MG PER DAY
     Route: 048
     Dates: start: 20120328
  6. VANCOMYCIN [Concomitant]
     Indication: PRODUCT USED FOR UNKNOWN INDICATION
     Route: 065
  7. VANCOMYCIN [Concomitant]
     Route: 065
  8. REVATIO [Concomitant]
     Indication: PULMONARY ARTERIAL HYPERTENSION
     Route: 048
     Dates: start: 20120130, end: 20120411
  9. BERAPROST SODIUM [Concomitant]
     Indication: PULMONARY ARTERIAL HYPERTENSION
     Route: 048
     Dates: start: 20120131, end: 20120203
  10. TAKEPRON [Concomitant]
     Route: 048
     Dates: start: 20120127
  11. DIGOXIN [Concomitant]
     Route: 048
  12. DIGOXIN [Concomitant]
     Route: 048
  13. DIGOXIN [Concomitant]
     Route: 048
  14. FUROSEMIDE [Concomitant]
     Route: 048
  15. FUROSEMIDE [Concomitant]
     Route: 048
  16. FUROSEMIDE [Concomitant]
     Route: 048
  17. ALDACTONE A [Concomitant]
     Route: 048
     Dates: start: 20120203
  18. WARFARIN POTASSIUM [Concomitant]
     Route: 048
  19. WARFARIN POTASSIUM [Concomitant]
     Route: 048
  20. WARFARIN POTASSIUM [Concomitant]
     Route: 048
  21. CARELOAD [Concomitant]
     Indication: PULMONARY ARTERIAL HYPERTENSION
     Route: 048
     Dates: start: 20120204
  22. VANCOMYCIN HYDROCHLORIDE [Suspect]
     Route: 042
     Dates: start: 20120215, end: 20120218

REACTIONS (3)
  - Myelodysplastic syndrome [Fatal]
  - Anaemia [Fatal]
  - Pneumonia staphylococcal [Recovered/Resolved]
